FAERS Safety Report 5209687-7 (Version None)
Quarter: 2007Q1

REPORT INFORMATION
  Report Type: 
  Country: None (occurrence: None)
  Receive Date: 20070111
  Receipt Date: 20070104
  Transmission Date: 20070707
  Serious: Yes (Disabling)
  Sender: FDA-Public Use
  Company Number: GXKR2007DK00518

PATIENT
  Age: 67 Year
  Sex: Female

DRUGS (5)
  1. BIOCLAVID                               (AMOXICILLIN, CLAVULANATE) [Suspect]
     Indication: RESPIRATORY TRACT INFECTION
     Dosage: 3 TABLES, QD, ORAL
     Route: 048
     Dates: start: 20061222, end: 20061225
  2. SPIRIVA [Concomitant]
  3. CENTYL MED KALIUMKLORID ( BENDROFLUMETHIAZIDE, POTASSIUM CHLORIDE) [Concomitant]
  4. LEVOTHYROXINE SODIUM [Concomitant]
  5. SERETIDE                 (FLUTICASONE PROPIONATE, SALMETEROL XINAFOATE [Concomitant]

REACTIONS (5)
  - APHTHOUS STOMATITIS [None]
  - HEADACHE [None]
  - LIP SWELLING [None]
  - PAIN [None]
  - SWELLING FACE [None]
